FAERS Safety Report 9883718 (Version 1)
Quarter: 2014Q1

REPORT INFORMATION
  Report Type: Spontaneous
  Country: IN (occurrence: IN)
  Receive Date: 20140210
  Receipt Date: 20140210
  Transmission Date: 20141002
  Serious: Yes (Hospitalization)
  Sender: FDA-Public Use
  Company Number: IN-MERCK-1402IND001603

PATIENT
  Sex: Male

DRUGS (2)
  1. VIRAFERONPEG [Suspect]
     Indication: HEPATITIS C
     Dosage: 1 DF, QW
     Route: 058
     Dates: start: 20130923, end: 20131230
  2. REBETOL [Suspect]

REACTIONS (2)
  - Haematuria [Not Recovered/Not Resolved]
  - Viral load increased [Not Recovered/Not Resolved]
